FAERS Safety Report 6102445-0 (Version None)
Quarter: 2009Q1

REPORT INFORMATION
  Report Type: 
  Country: None (occurrence: None)
  Receive Date: 20090304
  Receipt Date: 20090218
  Transmission Date: 20090719
  Serious: Yes (Hospitalization)
  Sender: FDA-Public Use
  Company Number: DE-GENENTECH-278002

PATIENT
  Sex: Female

DRUGS (3)
  1. AVASTIN [Suspect]
     Indication: OVARIAN CANCER
     Dosage: 10 MG/KG, 2/WEEK
     Route: 042
     Dates: start: 20080519, end: 20080707
  2. TREOSULFAN [Concomitant]
     Indication: OVARIAN CANCER
     Dosage: 3000 MG/M2, UNK
     Route: 042
  3. TAXOL [Concomitant]
     Indication: OVARIAN CANCER
     Dosage: 90 MG/M2, UNK
     Route: 042
     Dates: start: 20080623, end: 20080901

REACTIONS (1)
  - SKIN ULCER [None]
